FAERS Safety Report 23875954 (Version 2)
Quarter: 2024Q3

REPORT INFORMATION
  Report Type: Spontaneous
  Country: US (occurrence: US)
  Receive Date: 20240520
  Receipt Date: 20240717
  Transmission Date: 20241017
  Serious: No
  Sender: SANOFI AVENTIS
  Company Number: US-SA-SAC20240514001232

PATIENT
  Age: 6 Year
  Sex: Female

DRUGS (10)
  1. DUPIXENT [Suspect]
     Active Substance: DUPILUMAB
     Indication: Asthma
     Dosage: 200 MG, QOW
     Route: 058
     Dates: start: 20230607
  2. DUPIXENT [Suspect]
     Active Substance: DUPILUMAB
     Indication: Dermatitis atopic
  3. ALBUTEROL SULFATE [Concomitant]
     Active Substance: ALBUTEROL SULFATE
  4. DULERA [Concomitant]
     Active Substance: FORMOTEROL FUMARATE DIHYDRATE\MOMETASONE FUROATE
  5. PREDNISOLONE [Concomitant]
     Active Substance: PREDNISOLONE
  6. TACROLIMUS [Concomitant]
     Active Substance: TACROLIMUS
  7. DEXAMETHASONE [Concomitant]
     Active Substance: DEXAMETHASONE
  8. TRIAMCINOLONE [Concomitant]
     Active Substance: TRIAMCINOLONE
  9. EPINEPHRINE [Concomitant]
     Active Substance: EPINEPHRINE
  10. FLUTICASONE [Concomitant]
     Active Substance: FLUTICASONE

REACTIONS (6)
  - Sleep disorder due to a general medical condition [Unknown]
  - Impaired quality of life [Unknown]
  - Infection [Not Recovered/Not Resolved]
  - Malaise [Unknown]
  - Asthma [Unknown]
  - Therapeutic response decreased [Unknown]
